FAERS Safety Report 6775758-7 (Version None)
Quarter: 2010Q2

REPORT INFORMATION
  Report Type: 
  Country: None (occurrence: None)
  Receive Date: 20100617
  Receipt Date: 20100607
  Transmission Date: 20101027
  Serious: Yes (Other)
  Sender: FDA-Public Use
  Company Number: DE-CVT-100357

PATIENT

DRUGS (12)
  1. RANEXA [Suspect]
     Indication: ANGINA PECTORIS
     Dosage: 500 MG, BID
     Route: 048
     Dates: start: 20100401
  2. MARCUMAR [Suspect]
     Indication: ATRIAL FIBRILLATION
     Dosage: UNK, UNK
     Route: 048
  3. SEROQUEL [Concomitant]
  4. HYDROMORPHONE HCL [Concomitant]
  5. NEURONTIN [Concomitant]
  6. MELPERON [Concomitant]
  7. NOVALGIN                           /00039501/ [Concomitant]
  8. AMLODIPINE [Concomitant]
  9. TORSEMIDE [Concomitant]
  10. DIGITOXIN [Concomitant]
  11. VALSARTAN [Concomitant]
  12. OMEPRAZOLE [Concomitant]

REACTIONS (2)
  - DRUG INTERACTION [None]
  - INTERNATIONAL NORMALISED RATIO INCREASED [None]
